FAERS Safety Report 10712446 (Version 2)
Quarter: 2015Q1

REPORT INFORMATION
  Report Type: Spontaneous
  Country: US (occurrence: US)
  Receive Date: 20150115
  Receipt Date: 20150116
  Transmission Date: 20150721
  Serious: No
  Sender: FDA-Public Use
  Company Number: US-009507513-1501USA002088

PATIENT
  Sex: Female
  Weight: 165 kg

DRUGS (1)
  1. NUVARING [Suspect]
     Active Substance: ETHINYL ESTRADIOL\ETONOGESTREL
     Indication: PRODUCT USED FOR UNKNOWN INDICATION
     Dosage: 1 RING EVERY THREE WEEKS
     Route: 067
     Dates: start: 2012

REACTIONS (3)
  - Product used for unknown indication [Unknown]
  - Product quality issue [Unknown]
  - Medical device discomfort [Unknown]
